FAERS Safety Report 5105244-1 (Version None)
Quarter: 2006Q3

REPORT INFORMATION
  Report Type: 
  Country: None (occurrence: None)
  Receive Date: 20060911
  Receipt Date: 20060822
  Transmission Date: 20061208
  Serious: Yes (Other)
  Sender: FDA-Public Use
  Company Number: US200608001380

PATIENT
  Age: 78 Year
  Sex: Female
  Weight: 52.6 kg

DRUGS (3)
  1. FORTEO [Suspect]
     Indication: OSTEOPOROSIS
     Dates: start: 20060512, end: 20060801
  2. FORTEO [Concomitant]
  3. ZETIA [Concomitant]

REACTIONS (3)
  - EAR PAIN [None]
  - HYPERTENSION [None]
  - PHARMACEUTICAL PRODUCT COMPLAINT [None]
